FAERS Safety Report 4447606-1 (Version None)
Quarter: 2004Q3

REPORT INFORMATION
  Report Type: 
  Country: None (occurrence: None)
  Receive Date: 20040812
  Receipt Date: 20040512
  Transmission Date: 20050211
  Serious: No
  Sender: FDA-Public Use
  Company Number: USA040567063

PATIENT
  Age: 66 Year
  Sex: Male

DRUGS (6)
  1. CIALIS [Suspect]
     Indication: ERECTILE DYSFUNCTION
     Dosage: 20 MG
     Dates: start: 20040508
  2. METFORMIN HCL [Concomitant]
  3. GLYBURIDE [Concomitant]
  4. CHROMIUM PICOLINATE [Concomitant]
  5. ACTOS [Concomitant]
  6. MULTI-VITAMIN [Concomitant]

REACTIONS (6)
  - ANGER [None]
  - DISTURBANCE IN SEXUAL AROUSAL [None]
  - DRUG INEFFECTIVE [None]
  - HEADACHE [None]
  - PALPITATIONS [None]
  - THERAPEUTIC RESPONSE DECREASED [None]
